FAERS Safety Report 5834930-0 (Version None)
Quarter: 2008Q3

REPORT INFORMATION
  Report Type: 
  Country: None (occurrence: None)
  Receive Date: 20080801
  Receipt Date: 20080721
  Transmission Date: 20090109
  Serious: Yes (Other)
  Sender: FDA-Public Use
  Company Number: 230581J08CAN

PATIENT
  Sex: Female

DRUGS (1)
  1. REBIF [Suspect]
     Indication: RELAPSING-REMITTING MULTIPLE SCLEROSIS
     Dosage: 22 MCG
     Dates: start: 20061229

REACTIONS (3)
  - HEPATIC ENZYME INCREASED [None]
  - SUPRAVENTRICULAR TACHYCARDIA [None]
  - VISUAL IMPAIRMENT [None]
